FAERS Safety Report 8496152 (Version 2)
Quarter: 2014Q2

REPORT INFORMATION
  Report Type: Spontaneous
  Country: US (occurrence: US)
  Receive Date: 20120405
  Receipt Date: 20140528
  Transmission Date: 20141212
  Serious: Yes (Death, Hospitalization)
  Sender: FDA-Public Use
  Company Number: US-GLAXOSMITHKLINE-A0750967A

PATIENT
  Age: 64 Year
  Sex: Male
  Weight: 102.3 kg

DRUGS (12)
  1. AVANDIA [Suspect]
     Indication: TYPE 2 DIABETES MELLITUS
     Dosage: 8MG PER DAY
     Route: 048
     Dates: start: 2000, end: 20070301
  2. TRICOR [Concomitant]
  3. GLYBURIDE [Concomitant]
  4. ZYRTEC [Concomitant]
  5. AVAPRO [Concomitant]
  6. OMEPRAZOLE [Concomitant]
  7. QUINAPRIL [Concomitant]
  8. LIPITOR [Concomitant]
  9. GEMFIBROZIL [Concomitant]
  10. VOLTAREN [Concomitant]
  11. ACCUPRIL [Concomitant]
  12. PRILOSEC [Concomitant]

REACTIONS (1)
  - Myocardial infarction [Fatal]
